FAERS Safety Report 8848063 (Version 1)
Quarter: 2012Q4

REPORT INFORMATION
  Report Type: 
  Country: US (occurrence: US)
  Receive Date: 20121018
  Receipt Date: 20121018
  Transmission Date: 20130627
  Serious: No
  Sender: FDA-Public Use
  Company Number: US-PFIZER INC-2012259979

PATIENT
  Age: 59 Year
  Sex: Female
  Weight: 63.49 kg

DRUGS (2)
  1. PRISTIQ [Suspect]
     Indication: DEPRESSION
     Dosage: 50 mg, daily
     Route: 048
     Dates: start: 2012
  2. BONIVA [Concomitant]
     Dosage: UNK

REACTIONS (1)
  - Anxiety [Recovering/Resolving]
